FAERS Safety Report 25056431 (Version 1)
Quarter: 2025Q1

REPORT INFORMATION
  Report Type: Report from Study
  Country: US (occurrence: US)
  Receive Date: 20250310
  Receipt Date: 20250310
  Transmission Date: 20250408
  Serious: Yes (Hospitalization, Other)
  Sender: JAZZ
  Company Number: US-JAZZ PHARMACEUTICALS-2025-US-005452

PATIENT
  Age: 40 Year
  Sex: Female

DRUGS (11)
  1. XYWAV [Suspect]
     Active Substance: CALCIUM OXYBATE\MAGNESIUM OXYBATE\POTASSIUM OXYBATE\SODIUM OXYBATE
     Indication: Narcolepsy
     Dosage: 6 GRAM, QD NIGHTLY
  2. XYWAV [Suspect]
     Active Substance: CALCIUM OXYBATE\MAGNESIUM OXYBATE\POTASSIUM OXYBATE\SODIUM OXYBATE
     Indication: Cataplexy
     Dosage: 4.5 GRAM, QD
  3. XYWAV [Suspect]
     Active Substance: CALCIUM OXYBATE\MAGNESIUM OXYBATE\POTASSIUM OXYBATE\SODIUM OXYBATE
     Indication: Somnolence
  4. XYWAV [Suspect]
     Active Substance: CALCIUM OXYBATE\MAGNESIUM OXYBATE\POTASSIUM OXYBATE\SODIUM OXYBATE
  5. CLONAZEPAM [Concomitant]
     Active Substance: CLONAZEPAM
     Dates: start: 20231211
  6. CLONAZEPAM [Concomitant]
     Active Substance: CLONAZEPAM
     Dates: start: 20240125
  7. PREGABALIN [Concomitant]
     Active Substance: PREGABALIN
     Dates: start: 20240109
  8. DAYTIME COLD AND FLU [Concomitant]
     Dates: start: 20250228
  9. VRAYLAR [Concomitant]
     Active Substance: CARIPRAZINE
  10. GEMTESA [Concomitant]
     Active Substance: VIBEGRON
     Dates: start: 20250218
  11. WEGOVY [Concomitant]
     Active Substance: SEMAGLUTIDE

REACTIONS (9)
  - Hospitalisation [Unknown]
  - Rheumatoid arthritis [Unknown]
  - Claustrophobia [Unknown]
  - COVID-19 [Unknown]
  - Nasopharyngitis [Unknown]
  - Vertigo [Unknown]
  - Nightmare [Unknown]
  - Treatment noncompliance [Unknown]
  - Off label use [Unknown]

NARRATIVE: CASE EVENT DATE: 20250223
